FAERS Safety Report 4373899-5 (Version None)
Quarter: 2004Q1

REPORT INFORMATION
  Report Type: 
  Country: None (occurrence: None)
  Receive Date: 20040305
  Receipt Date: 20040113
  Transmission Date: 20041129
  Serious: Yes (Other)
  Sender: FDA-Public Use
  Company Number: 2003UW16352

PATIENT
  Age: 43 Year
  Sex: Male

DRUGS (1)
  1. CRESTOR [Suspect]
     Dosage: 10 MG QD PO
     Route: 048
     Dates: start: 20030917

REACTIONS (1)
  - BLOOD TRIGLYCERIDES INCREASED [None]
